FAERS Safety Report 8112531-1 (Version None)
Quarter: 2012Q1

REPORT INFORMATION
  Report Type: 
  Country: None (occurrence: None)
  Receive Date: 20120203
  Receipt Date: 20120130
  Transmission Date: 20120608
  Serious: Yes (Hospitalization, Other)
  Sender: FDA-Public Use
  Company Number: US-AMGEN-USASP2012006251

PATIENT
  Age: 58 Year
  Sex: Male

DRUGS (1)
  1. ENBREL [Suspect]
     Indication: PSORIATIC ARTHROPATHY
     Dosage: 50 MG, QWK
     Dates: start: 20040301

REACTIONS (11)
  - STAPHYLOCOCCAL INFECTION [None]
  - JOINT SWELLING [None]
  - LIGAMENT SPRAIN [None]
  - COLONIC OBSTRUCTION [None]
  - THROMBOSIS [None]
  - POSTOPERATIVE ADHESION [None]
  - ARTHRALGIA [None]
  - DEVICE DISLOCATION [None]
  - KNEE ARTHROPLASTY [None]
  - PERIPHERAL NERVE INJURY [None]
  - FALL [None]
